FAERS Safety Report 4964301-0 (Version None)
Quarter: 2006Q2

REPORT INFORMATION
  Report Type: 
  Country: None (occurrence: None)
  Receive Date: 20060406
  Receipt Date: 20060316
  Transmission Date: 20061013
  Serious: Yes (Hospitalization)
  Sender: FDA-Public Use
  Company Number: AU-BRISTOL-MYERS SQUIBB COMPANY-13317557

PATIENT
  Age: 75 Year
  Sex: Male
  Weight: 71 kg

DRUGS (8)
  1. CISPLATIN [Suspect]
     Indication: NON-SMALL CELL LUNG CANCER
     Route: 042
     Dates: start: 20060127, end: 20060127
  2. GEMCITABINE [Suspect]
     Indication: NON-SMALL CELL LUNG CANCER
     Route: 042
     Dates: start: 20060127, end: 20060127
  3. ESOMEPRAZOLE MAGNESIUM [Concomitant]
     Indication: GASTROOESOPHAGEAL REFLUX DISEASE
  4. SIMVASTATIN [Concomitant]
     Indication: HYPERCHOLESTEROLAEMIA
  5. AMPHOTERICIN B [Concomitant]
     Indication: STOMATITIS
     Dates: start: 20051214
  6. HALOPERIDOL [Concomitant]
     Indication: NAUSEA
     Dates: start: 20060306
  7. LORAZEPAM [Concomitant]
     Indication: NAUSEA
     Dates: start: 20060305
  8. PROCHLORPERAZINE [Concomitant]
     Indication: NAUSEA
     Dates: start: 20060303

REACTIONS (9)
  - AGITATION [None]
  - DELIRIUM [None]
  - DISORIENTATION [None]
  - DYSARTHRIA [None]
  - EXTRAPYRAMIDAL DISORDER [None]
  - FAECAL INCONTINENCE [None]
  - GRAND MAL CONVULSION [None]
  - HALLUCINATION [None]
  - URINARY INCONTINENCE [None]
